FAERS Safety Report 5847463-2 (Version None)
Quarter: 2008Q3

REPORT INFORMATION
  Report Type: 
  Country: None (occurrence: None)
  Receive Date: 20080815
  Receipt Date: 20080806
  Transmission Date: 20090109
  Serious: Yes (Other)
  Sender: FDA-Public Use
  Company Number: US-AMGEN-US299989

PATIENT
  Sex: Female

DRUGS (4)
  1. ENBREL [Suspect]
     Indication: RHEUMATOID ARTHRITIS
     Route: 058
     Dates: start: 20030305, end: 20030801
  2. ENBREL [Suspect]
     Route: 058
     Dates: start: 20050607, end: 20060501
  3. METHOTREXATE [Suspect]
     Route: 048
     Dates: start: 20030305
  4. METHOTREXATE [Suspect]
     Route: 048
     Dates: start: 20050607

REACTIONS (1)
  - TUBERCULIN TEST POSITIVE [None]
